FAERS Safety Report 9927748 (Version 1)
Quarter: 2014Q1

REPORT INFORMATION
  Report Type: Spontaneous
  Country: US (occurrence: US)
  Receive Date: 20140227
  Receipt Date: 20140227
  Transmission Date: 20141002
  Serious: No
  Sender: FDA-Public Use
  Company Number: US-009507513-1402USA006166

PATIENT
  Sex: Male

DRUGS (4)
  1. LIPTRUZET [Suspect]
     Indication: BLOOD CHOLESTEROL
     Dosage: 10/40 DAILY
     Route: 048
     Dates: start: 201401, end: 2014
  2. ZETIA [Suspect]
     Dosage: UNK
     Route: 048
     Dates: start: 2014
  3. ATORVASTATIN [Suspect]
     Dosage: UNK
     Dates: start: 2014
  4. OMEGA-3 MARINE TRIGLYCERIDES [Concomitant]

REACTIONS (2)
  - Arthralgia [Unknown]
  - Therapeutic response unexpected [Unknown]
